FAERS Safety Report 10173553 (Version 1)
Quarter: 2014Q2

REPORT INFORMATION
  Report Type: Spontaneous
  Country: US (occurrence: None)
  Receive Date: 20140415
  Receipt Date: 20140415
  Transmission Date: 20141212
  Serious: Yes (Other)
  Sender: FDA-Public Use
  Company Number: ALL1-2014-01140

PATIENT
  Sex: Male

DRUGS (3)
  1. LIALDA [Suspect]
     Indication: COLITIS ULCERATIVE
     Route: 048
  2. SIMPONI [Suspect]
     Indication: COLITIS ULCERATIVE
     Route: 058
     Dates: start: 201401
  3. PREDNISONE [Suspect]
     Indication: COLITIS ULCERATIVE
     Dosage: 20 MG, 1X/DAY:QD, UNKNOWN
     Dates: end: 20140117

REACTIONS (3)
  - Intestinal haemorrhage [None]
  - Frequent bowel movements [None]
  - Acne [None]
